FAERS Safety Report 9257811 (Version 3)
Quarter: 2013Q4

REPORT INFORMATION
  Report Type: Spontaneous
  Country: US (occurrence: US)
  Receive Date: 20130426
  Receipt Date: 20131003
  Transmission Date: 20140711
  Serious: No
  Sender: FDA-Public Use
  Company Number: US-ASTRAZENECA-2013SE27737

PATIENT
  Age: 68 Year
  Sex: Female
  Weight: 62.1 kg

DRUGS (25)
  1. NEXIUM [Suspect]
     Indication: DYSPEPSIA
     Route: 048
     Dates: start: 19970102, end: 20080420
  2. NEXIUM [Suspect]
     Indication: GASTROOESOPHAGEAL REFLUX DISEASE
     Route: 048
     Dates: start: 19970102, end: 20080420
  3. NEXIUM [Suspect]
     Indication: ABDOMINAL DISCOMFORT
     Route: 048
     Dates: start: 19970102, end: 20080420
  4. NEXIUM [Suspect]
     Indication: ABDOMINAL PAIN UPPER
     Route: 048
     Dates: start: 19970102, end: 20080420
  5. NEXIUM [Suspect]
     Indication: DYSPEPSIA
     Route: 048
     Dates: start: 20010510
  6. NEXIUM [Suspect]
     Indication: GASTROOESOPHAGEAL REFLUX DISEASE
     Route: 048
     Dates: start: 20010510
  7. NEXIUM [Suspect]
     Indication: ABDOMINAL DISCOMFORT
     Route: 048
     Dates: start: 20010510
  8. NEXIUM [Suspect]
     Indication: ABDOMINAL PAIN UPPER
     Route: 048
     Dates: start: 20010510
  9. NEXIUM [Suspect]
     Indication: DYSPEPSIA
     Route: 048
     Dates: start: 20110720
  10. NEXIUM [Suspect]
     Indication: GASTROOESOPHAGEAL REFLUX DISEASE
     Route: 048
     Dates: start: 20110720
  11. NEXIUM [Suspect]
     Indication: ABDOMINAL DISCOMFORT
     Route: 048
     Dates: start: 20110720
  12. NEXIUM [Suspect]
     Indication: ABDOMINAL PAIN UPPER
     Route: 048
     Dates: start: 20110720
  13. METFORMIN [Concomitant]
     Indication: DIABETES MELLITUS
  14. LANSOPRAZOLE [Concomitant]
     Indication: GASTROOESOPHAGEAL REFLUX DISEASE
     Dates: start: 20110503
  15. LISINOPRIL [Concomitant]
     Indication: BLOOD PRESSURE ABNORMAL
  16. VITAMIN D [Concomitant]
     Indication: BONE DISORDER
  17. FAMOTIDINE [Concomitant]
  18. BENZONATATE [Concomitant]
  19. NIACIN [Concomitant]
     Indication: BLOOD TRIGLYCERIDES INCREASED
  20. PREMARIN CREA [Concomitant]
     Dates: start: 20090403
  21. LORAZEPAM [Concomitant]
     Indication: PAIN
     Dates: start: 20091102
  22. TUMS [Concomitant]
  23. ROLAIDS [Concomitant]
  24. CALCIUM CLAWS [Concomitant]
     Indication: BONE DISORDER
  25. PROTONIX [Concomitant]
     Dates: start: 20060206

REACTIONS (7)
  - Osteoporosis [Unknown]
  - Bone density decreased [Unknown]
  - Multiple fractures [Unknown]
  - Diabetes mellitus [Unknown]
  - Calcium deficiency [Unknown]
  - Injury [Unknown]
  - Fall [Unknown]
